FAERS Safety Report 8259333-3 (Version None)
Quarter: 2012Q2

REPORT INFORMATION
  Report Type: 
  Country: None (occurrence: None)
  Receive Date: 20120404
  Receipt Date: 20120323
  Transmission Date: 20120825
  Serious: Yes (Hospitalization)
  Sender: FDA-Public Use
  Company Number: US-FRI-1000028430

PATIENT
  Sex: Female
  Weight: 66.7 kg

DRUGS (2)
  1. ZYVOX [Suspect]
     Dates: start: 20120118, end: 20120119
  2. LEXAPRO [Suspect]
     Indication: DEPRESSION
     Dosage: 40 MG
     Dates: end: 20120119

REACTIONS (4)
  - DISORIENTATION [None]
  - BACTERAEMIA [None]
  - SEROTONIN SYNDROME [None]
  - OVERDOSE [None]
